FAERS Safety Report 10263067 (Version 2)
Quarter: 2014Q2

REPORT INFORMATION
  Report Type: Report from Study
  Country: US (occurrence: US)
  Receive Date: 20140626
  Receipt Date: 20140626
  Transmission Date: 20141212
  Serious: Yes (Life-Threatening, Other)
  Sender: FDA-Public Use
  Company Number: US-MYLANLABS-2014S1000310

PATIENT
  Age: 51 Year
  Sex: Male

DRUGS (14)
  1. CLOZAPINE TABLETS [Suspect]
     Route: 048
     Dates: end: 20140113
  2. CLOZAPINE TABLETS [Suspect]
     Route: 048
     Dates: end: 20140113
  3. METFORMIN [Concomitant]
     Route: 048
  4. VERAPAMIL [Concomitant]
     Dosage: USING 180MG TABLET
     Route: 048
  5. LEVOTHYROXINE [Concomitant]
     Route: 048
  6. BENZTROPINE [Concomitant]
     Route: 048
  7. FLUPHENAZINE [Concomitant]
     Route: 048
  8. OXYBUTYNIN [Concomitant]
     Route: 048
  9. LORAZEPAM [Concomitant]
     Route: 048
  10. DIPHENHYDRAMINE [Concomitant]
     Route: 048
  11. ZOLPIDEM [Concomitant]
     Route: 048
  12. SENNA [Concomitant]
     Route: 048
  13. POTASSIUM CHLORIDE [Concomitant]
     Route: 048
  14. MULTIVITAMIN [Concomitant]
     Route: 048

REACTIONS (3)
  - Agranulocytosis [Recovered/Resolved]
  - Granulocytopenia [Recovered/Resolved]
  - Leukopenia [Recovered/Resolved]
